FAERS Safety Report 19034327 (Version 1)
Quarter: 2021Q1

REPORT INFORMATION
  Report Type: Other
  Country: IN (occurrence: IN)
  Receive Date: 20210320
  Receipt Date: 20210320
  Transmission Date: 20210420
  Serious: Yes (Other)
  Sender: FDA-Public Use
  Company Number: IN-LAURUS-001067

PATIENT

DRUGS (1)
  1. HYDROXYCHLOROQUINE [Suspect]
     Active Substance: HYDROXYCHLOROQUINE
     Indication: SYSTEMIC LUPUS ERYTHEMATOSUS
     Dosage: MEAN DAILY DOSE 3.6 MG/KG REAL BODY WEIGHT, CUMULATIVE DOSE 1201.6 (GRAMS)

REACTIONS (2)
  - Retinopathy [Unknown]
  - Toxicity to various agents [Unknown]
